FAERS Safety Report 11532855 (Version 1)
Quarter: 2015Q3

REPORT INFORMATION
  Report Type: Spontaneous
  Country: US (occurrence: US)
  Receive Date: 20150903
  Receipt Date: 20150903
  Transmission Date: 20151125
  Serious: Yes (Hospitalization)
  Sender: FDA-Public Use
  Company Number: US-ELI_LILLY_AND_COMPANY-US201012005794

PATIENT
  Age: 65 Year
  Sex: Male

DRUGS (19)
  1. BEANO [Concomitant]
     Active Substance: ASPERGILLUS NIGER .ALPHA.-GALACTOSIDASE
     Dosage: UNK, AS NEEDED
     Route: 048
     Dates: start: 20101210, end: 201012
  2. METFORMIN [Concomitant]
     Active Substance: METFORMIN HYDROCHLORIDE
  3. CYANOCOBALAMIN. [Concomitant]
     Active Substance: CYANOCOBALAMIN
  4. GLIPIZIDE. [Concomitant]
     Active Substance: GLIPIZIDE
  5. VITAMIN E [Concomitant]
     Active Substance: .ALPHA.-TOCOPHEROL
  6. LANTUS [Concomitant]
     Active Substance: INSULIN GLARGINE
     Dosage: 21 U, EACH EVENING
  7. SINGULAIR [Concomitant]
     Active Substance: MONTELUKAST SODIUM
  8. NEURONTIN [Concomitant]
     Active Substance: GABAPENTIN
  9. HUMALOG [Suspect]
     Active Substance: INSULIN LISPRO
     Indication: DIABETES MELLITUS
     Dosage: 25 U, EACH EVENING
     Route: 058
  10. LIPITOR [Concomitant]
     Active Substance: ATORVASTATIN CALCIUM
  11. OMEPRAZOL [Concomitant]
     Active Substance: OMEPRAZOLE
  12. MAGNESIUM SALT [Concomitant]
  13. ADVAIR HFA [Concomitant]
     Active Substance: FLUTICASONE PROPIONATE\SALMETEROL XINAFOATE
  14. MELOXICAM. [Concomitant]
     Active Substance: MELOXICAM
  15. TRAMADOL. [Concomitant]
     Active Substance: TRAMADOL
  16. LANTUS [Concomitant]
     Active Substance: INSULIN GLARGINE
     Indication: DIABETES MELLITUS
     Dosage: 24 U, EACH MORNING
     Route: 058
  17. IBUPROFEN. [Concomitant]
     Active Substance: IBUPROFEN
  18. LISINOPRIL. [Concomitant]
     Active Substance: LISINOPRIL
  19. COREG [Concomitant]
     Active Substance: CARVEDILOL

REACTIONS (3)
  - Blood glucose decreased [Recovered/Resolved]
  - Hyperhidrosis [Recovered/Resolved]
  - Tremor [Recovered/Resolved]

NARRATIVE: CASE EVENT DATE: 20101211
